FAERS Safety Report 14577119 (Version 1)
Quarter: 2018Q1

REPORT INFORMATION
  Report Type: Spontaneous
  Country: IL (occurrence: IL)
  Receive Date: 20180227
  Receipt Date: 20180227
  Transmission Date: 20180509
  Serious: Yes (Other)
  Sender: FDA-Public Use
  Company Number: IL-ARBOR PHARMACEUTICALS, LLC-IL-2018ARB000301

PATIENT
  Age: 73 Year
  Sex: Female

DRUGS (3)
  1. PERPHENAZINE. [Suspect]
     Active Substance: PERPHENAZINE
     Indication: HALLUCINATION
     Dosage: 8 MG, QD
  2. ROPINIROLE. [Concomitant]
     Active Substance: ROPINIROLE
     Indication: PARKINSON^S DISEASE
     Dosage: 16 MG, QD
  3. CARBIDOPA. [Concomitant]
     Active Substance: CARBIDOPA
     Indication: PARKINSON^S DISEASE
     Dosage: 1 DF, QID

REACTIONS (1)
  - Parkinson^s disease [Recovered/Resolved]
